FAERS Safety Report 4833063-X (Version None)
Quarter: 2005Q4

REPORT INFORMATION
  Report Type: 
  Country: None (occurrence: None)
  Receive Date: 20051117
  Receipt Date: 20051107
  Transmission Date: 20060501
  Serious: Yes (Hospitalization)
  Sender: FDA-Public Use
  Company Number: 2005BI005770

PATIENT
  Age: 39 Year
  Sex: Female
  Weight: 65.7716 kg

DRUGS (3)
  1. AVONEX [Suspect]
     Indication: MULTIPLE SCLEROSIS
     Dosage: 30 UG; QW; IM
     Route: 030
     Dates: start: 19980611, end: 20030811
  2. AVONEX [Suspect]
     Indication: MULTIPLE SCLEROSIS
     Dosage: 30 UG;QW; IM
     Route: 030
     Dates: start: 20031006
  3. SYNTHROID [Concomitant]

REACTIONS (10)
  - ASTHENIA [None]
  - AUTOIMMUNE THYROIDITIS [None]
  - BONE DENSITY DECREASED [None]
  - CONDITION AGGRAVATED [None]
  - GAIT DISTURBANCE [None]
  - MOVEMENT DISORDER [None]
  - MULTIPLE SCLEROSIS [None]
  - PAPILLARY THYROID CANCER [None]
  - THROMBOSIS [None]
  - WEIGHT INCREASED [None]
